FAERS Safety Report 8903666 (Version 1)
Quarter: 2012Q4

REPORT INFORMATION
  Report Type: 
  Country: US (occurrence: US)
  Receive Date: 20121113
  Receipt Date: 20121113
  Transmission Date: 20130627
  Serious: No
  Sender: FDA-Public Use
  Company Number: US-BAUSCH-BL-2012-001074

PATIENT
  Age: 53 Year
  Sex: Female

DRUGS (3)
  1. PROPARACAINE HYDROCHLORIDE [Suspect]
     Indication: EYE PAIN
     Dosage: 2 Drops; Twice a day; Left eye
     Route: 047
     Dates: start: 20120924
  2. PROPARACAINE HYDROCHLORIDE [Suspect]
     Indication: OFF LABEL USE
  3. MOXIFLOXACIN HYDROCHLORIDE [Concomitant]
     Indication: EYE INFECTION
     Dosage: 1 Drop; Twice a day; Ophthalmic
     Route: 047
     Dates: start: 20120924

REACTIONS (1)
  - Drug ineffective for unapproved indication [Unknown]
